FAERS Safety Report 7610693-3 (Version None)
Quarter: 2011Q3

REPORT INFORMATION
  Report Type: 
  Country: None (occurrence: None)
  Receive Date: 20110707
  Receipt Date: 20110622
  Transmission Date: 20111222
  Serious: Yes (Hospitalization)
  Sender: FDA-Public Use
  Company Number: 2011MA006746

PATIENT
  Age: 62 Year
  Sex: Female

DRUGS (1)
  1. CLINDAMYCIN PHOSPHATE [Suspect]
     Indication: TRACHEITIS
     Dosage: 20 ML; 1X; IV
     Route: 042

REACTIONS (4)
  - LARYNGEAL OEDEMA [None]
  - LARYNGEAL OBSTRUCTION [None]
  - INFUSION RELATED REACTION [None]
  - DRUG HYPERSENSITIVITY [None]
